FAERS Safety Report 14773620 (Version 1)
Quarter: 2018Q2

REPORT INFORMATION
  Report Type: Spontaneous
  Country: PL (occurrence: PL)
  Receive Date: 20180418
  Receipt Date: 20180418
  Transmission Date: 20180711
  Serious: Yes (Other)
  Sender: FDA-Public Use
  Company Number: PHHY2017PL202353

PATIENT
  Age: 40 Year
  Sex: Female

DRUGS (6)
  1. SOLIFENACIN [Suspect]
     Active Substance: SOLIFENACIN
     Indication: POLLAKIURIA
     Dosage: 10 MG, QD
     Route: 065
  2. TAMSULOSIN [Suspect]
     Active Substance: TAMSULOSIN
     Route: 065
  3. TAMSULOSIN [Suspect]
     Active Substance: TAMSULOSIN
     Route: 065
  4. SOLIFENACIN [Suspect]
     Active Substance: SOLIFENACIN
     Route: 065
  5. TAMSULOSIN [Suspect]
     Active Substance: TAMSULOSIN
     Indication: POLLAKIURIA
     Dosage: 1 DF, QD
     Route: 065
  6. SOLIFENACIN [Suspect]
     Active Substance: SOLIFENACIN
     Route: 065

REACTIONS (2)
  - Off label use [Unknown]
  - Mucosal dryness [Recovered/Resolved]
